FAERS Safety Report 7074418-5 (Version None)
Quarter: 2010Q4

REPORT INFORMATION
  Report Type: 
  Country: None (occurrence: None)
  Receive Date: 20101029
  Receipt Date: 20101022
  Transmission Date: 20110411
  Serious: Yes (Hospitalization, Other)
  Sender: FDA-Public Use
  Company Number: US-PFIZER INC-2010121164

PATIENT
  Sex: Male
  Weight: 54.422 kg

DRUGS (4)
  1. GENOTROPIN [Suspect]
     Indication: GROWTH RETARDATION
     Dosage: 2 MG, 1X/DAY
     Dates: start: 20100901, end: 20101019
  2. GENOTROPIN [Suspect]
     Dosage: 2 MG, DAILY
     Dates: start: 20100901, end: 20101019
  3. MERCAPTOPURINE [Concomitant]
     Dosage: UNK
  4. RIFAXIMIN [Concomitant]
     Dosage: UNK

REACTIONS (4)
  - HEADACHE [None]
  - HEPATIC ENZYME INCREASED [None]
  - INTRACRANIAL PRESSURE INCREASED [None]
  - OVERDOSE [None]
